FAERS Safety Report 20862900 (Version 1)
Quarter: 2022Q2

REPORT INFORMATION
  Report Type: Spontaneous
  Country: US (occurrence: None)
  Receive Date: 20220523
  Receipt Date: 20220523
  Transmission Date: 20220721
  Serious: Yes (Hospitalization)
  Sender: FDA-Public Use
  Company Number: None

PATIENT
  Age: 50 Year
  Sex: Male
  Weight: 119 kg

DRUGS (1)
  1. APIXABAN [Suspect]
     Active Substance: APIXABAN
     Indication: Deep vein thrombosis
     Dates: start: 20180209, end: 20211221

REACTIONS (3)
  - Synovial cyst [None]
  - Peripheral artery thrombosis [None]
  - Peripheral artery thrombosis [None]

NARRATIVE: CASE EVENT DATE: 20211215
